FAERS Safety Report 7412365-7 (Version None)
Quarter: 2011Q2

REPORT INFORMATION
  Report Type: 
  Country: None (occurrence: None)
  Receive Date: 20110413
  Receipt Date: 20110405
  Transmission Date: 20111010
  Serious: Yes (Hospitalization, Other)
  Sender: FDA-Public Use
  Company Number: US-PURDUE-USA-2011-0066433

PATIENT
  Sex: Male

DRUGS (1)
  1. OXYCONTIN [Suspect]
     Indication: PRODUCT USED FOR UNKNOWN INDICATION
     Dosage: 80 MG, SEE TEXT

REACTIONS (6)
  - KIDNEY INFECTION [None]
  - FALL [None]
  - DIABETES MELLITUS [None]
  - ULCER [None]
  - RETINAL DISORDER [None]
  - UPPER LIMB FRACTURE [None]
